FAERS Safety Report 4514747-X (Version None)
Quarter: 2004Q4

REPORT INFORMATION
  Report Type: 
  Country: None (occurrence: None)
  Receive Date: 20041201
  Receipt Date: 20041119
  Transmission Date: 20050328
  Serious: Yes (Hospitalization)
  Sender: FDA-Public Use
  Company Number: US-JNJFOC-20041105314

PATIENT
  Sex: Female

DRUGS (22)
  1. INFLIXIMAB [Suspect]
     Indication: RHEUMATOID ARTHRITIS
     Route: 042
  2. DIOVAN HCT [Concomitant]
     Dosage: 160/12.5 TWICE DAILY
  3. DIOVAN HCT [Concomitant]
     Dosage: 100/12.5 TWICE DAILY
  4. DIGOXIN [Concomitant]
  5. ATENOLOL [Concomitant]
  6. PREDNISONE [Concomitant]
  7. ASPIRIN [Concomitant]
  8. FOSAMAX [Concomitant]
  9. TIMOPTIC [Concomitant]
  10. PERCOCET [Concomitant]
  11. PERCOCET [Concomitant]
     Indication: PAIN
  12. DARVOCET [Concomitant]
  13. DARVOCET [Concomitant]
     Indication: PAIN
  14. FOLIC ACID [Concomitant]
  15. MULTI-VITAMIN [Concomitant]
  16. MULTI-VITAMIN [Concomitant]
  17. MULTI-VITAMIN [Concomitant]
  18. MULTI-VITAMIN [Concomitant]
  19. MULTI-VITAMIN [Concomitant]
  20. MULTI-VITAMIN [Concomitant]
  21. MULTI-VITAMIN [Concomitant]
  22. MULTI-VITAMIN [Concomitant]

REACTIONS (3)
  - CARDIAC FAILURE CONGESTIVE [None]
  - SICK SINUS SYNDROME [None]
  - WHITE BLOOD CELL COUNT INCREASED [None]
